FAERS Safety Report 12934649 (Version 1)
Quarter: 2016Q4

REPORT INFORMATION
  Report Type: Spontaneous
  Country: AU (occurrence: AU)
  Receive Date: 20161111
  Receipt Date: 20161111
  Transmission Date: 20170207
  Serious: Yes (Death, Other)
  Sender: FDA-Public Use
  Company Number: PHHY2016AU153134

PATIENT
  Age: 86 Year
  Sex: Female

DRUGS (4)
  1. CLOFAZIMINE [Suspect]
     Active Substance: CLOFAZIMINE
     Indication: BRONCHIECTASIS
     Route: 065
  2. TIGECYCLINE. [Suspect]
     Active Substance: TIGECYCLINE
     Indication: CONDITION AGGRAVATED
  3. CLOFAZIMINE [Suspect]
     Active Substance: CLOFAZIMINE
     Indication: CONDITION AGGRAVATED
  4. TIGECYCLINE. [Suspect]
     Active Substance: TIGECYCLINE
     Indication: BRONCHIECTASIS
     Dosage: 50 MG, BID
     Route: 041

REACTIONS (4)
  - Bronchiectasis [Fatal]
  - Respiratory failure [Fatal]
  - Disease progression [Fatal]
  - Treatment failure [Unknown]
